FAERS Safety Report 19748434 (Version 5)
Quarter: 2021Q4

REPORT INFORMATION
  Report Type: Report from Study
  Country: US (occurrence: US)
  Receive Date: 20210825
  Receipt Date: 20211122
  Transmission Date: 20220303
  Serious: No
  Sender: FDA-Public Use
  Company Number: NVSC2021US175598

PATIENT
  Age: 70 Year
  Sex: Male

DRUGS (3)
  1. BEOVU [Suspect]
     Active Substance: BROLUCIZUMAB-DBLL
     Indication: Neovascular age-related macular degeneration
     Route: 065
  2. BEOVU [Suspect]
     Active Substance: BROLUCIZUMAB-DBLL
     Dosage: UNK
     Route: 047
     Dates: start: 20210916
  3. BEOVU [Suspect]
     Active Substance: BROLUCIZUMAB-DBLL
     Dosage: (EVERY 8 WEEK) VIAL
     Route: 047
     Dates: start: 20210913

REACTIONS (3)
  - Eye disorder [Unknown]
  - Hypoacusis [Unknown]
  - Visual impairment [Recovering/Resolving]

NARRATIVE: CASE EVENT DATE: 20210913
